FAERS Safety Report 5589280-7 (Version None)
Quarter: 2008Q1

REPORT INFORMATION
  Report Type: 
  Country: None (occurrence: None)
  Receive Date: 20080114
  Receipt Date: 20080108
  Transmission Date: 20080703
  Serious: Yes (Life-Threatening, Hospitalization)
  Sender: FDA-Public Use
  Company Number: PHRM2008FR00509

PATIENT
  Age: 86 Year
  Sex: Female

DRUGS (12)
  1. VOLTAREN [Suspect]
     Indication: OSTEOARTHRITIS
     Dosage: 75 MG, Q48H
     Route: 030
     Dates: start: 20071031, end: 20071111
  2. PREVISCAN [Concomitant]
     Dosage: 0.25 TAB 5 DAYS/7 + 0.50 TAB 2 DAYS/7
     Route: 048
  3. LASILIX [Concomitant]
     Dosage: 20 MG, BID
     Route: 048
  4. PIASCLEDINE [Concomitant]
  5. LORAZEPAM [Concomitant]
  6. NIFLURIL [Concomitant]
  7. NEBILOX [Concomitant]
     Dosage: 5 MG, QD
     Route: 048
  8. RAMIPRIL [Concomitant]
     Dosage: 2.5 MG, QD
     Route: 048
  9. ALDACTONE [Concomitant]
     Dosage: 25 MG, QD
     Route: 048
  10. NOVOLOG MIX 70/30 [Concomitant]
  11. DOLIPRANE [Concomitant]
  12. HEMIGOXINE [Concomitant]

REACTIONS (9)
  - CARDIAC FAILURE [None]
  - CONDITION AGGRAVATED [None]
  - CREATININE RENAL CLEARANCE DECREASED [None]
  - DYSPNOEA [None]
  - INJECTION SITE HAEMATOMA [None]
  - OEDEMA PERIPHERAL [None]
  - ORTHOPNOEA [None]
  - PO2 DECREASED [None]
  - PULMONARY OEDEMA [None]
